FAERS Safety Report 9840302 (Version 1)
Quarter: 2013Q4

REPORT INFORMATION
  Report Type: Spontaneous
  Country: US (occurrence: None)
  Receive Date: 20131223
  Receipt Date: 20131223
  Transmission Date: 20140711
  Serious: No
  Sender: FDA-Public Use
  Company Number: 219798LEO

PATIENT
  Age: 46 Year
  Sex: Female

DRUGS (1)
  1. PICATO [Suspect]
     Indication: ACTINIC KERATOSIS
     Dosage: FOR TWO DAYS TOPICAL
     Dates: start: 20121130, end: 20121201

REACTIONS (2)
  - Drug ineffective [None]
  - Inappropriate schedule of drug administration [None]
